FAERS Safety Report 5027473-8 (Version None)
Quarter: 2006Q2

REPORT INFORMATION
  Report Type: 
  Country: None (occurrence: None)
  Receive Date: 20060501
  Receipt Date: 20060201
  Transmission Date: 20061013
  Serious: No
  Sender: FDA-Public Use
  Company Number: 200610629BWH

PATIENT
  Sex: Male

DRUGS (2)
  1. NEXAVAR [Suspect]
  2. AVASTIN [Concomitant]

REACTIONS (2)
  - PAIN IN EXTREMITY [None]
  - PERIPHERAL SENSORY NEUROPATHY [None]
